FAERS Safety Report 6772517-6 (Version None)
Quarter: 2010Q2

REPORT INFORMATION
  Report Type: 
  Country: None (occurrence: None)
  Receive Date: 20100616
  Receipt Date: 20091006
  Transmission Date: 20101027
  Serious: No
  Sender: FDA-Public Use
  Company Number: US-ASTRAZENECA-2009SE14272

PATIENT
  Age: 3 Year
  Sex: Female
  Weight: 14.5 kg

DRUGS (2)
  1. PULMICORT RESPULES [Suspect]
     Indication: ASTHMA
     Route: 055
     Dates: start: 20090601
  2. ZYRTEC [Concomitant]

REACTIONS (1)
  - EYE DISCHARGE [None]
